FAERS Safety Report 7040957-6 (Version None)
Quarter: 2010Q4

REPORT INFORMATION
  Report Type: 
  Country: None (occurrence: None)
  Receive Date: 20101007
  Receipt Date: 20100927
  Transmission Date: 20110411
  Serious: Yes (Other)
  Sender: FDA-Public Use
  Company Number: 2010SP051996

PATIENT
  Age: 35 Year
  Sex: Female

DRUGS (3)
  1. SAPHRIS [Suspect]
     Indication: BIPOLAR I DISORDER
     Dosage: 5 MG;ONCE;SL
     Route: 060
     Dates: start: 20100901, end: 20100901
  2. NEURONTIN [Concomitant]
  3. DEPAKOTE [Concomitant]

REACTIONS (3)
  - HYPERSOMNIA [None]
  - RESPIRATORY FAILURE [None]
  - SEDATION [None]
